FAERS Safety Report 9339363 (Version 1)
Quarter: 2013Q2

REPORT INFORMATION
  Report Type: Spontaneous
  Country: US (occurrence: US)
  Receive Date: 20130610
  Receipt Date: 20130610
  Transmission Date: 20140414
  Serious: Yes (Hospitalization)
  Sender: FDA-Public Use
  Company Number: US-BAYER-2013-070688

PATIENT
  Age: 18 Year
  Sex: Female
  Weight: 65.76 kg

DRUGS (2)
  1. YASMIN [Suspect]
  2. ACYCLOVIR [ACICLOVIR] [Concomitant]
     Dosage: 200 MG, UNK
     Route: 048

REACTIONS (2)
  - Pelvic venous thrombosis [None]
  - Pulmonary embolism [None]
